FAERS Safety Report 13353992 (Version 3)
Quarter: 2017Q2

REPORT INFORMATION
  Report Type: Spontaneous
  Country: US (occurrence: US)
  Receive Date: 20170321
  Receipt Date: 20170531
  Transmission Date: 20170830
  Serious: No
  Sender: FDA-Public Use
  Company Number: US-PFIZER INC-2017117781

PATIENT
  Age: 55 Year
  Sex: Female

DRUGS (1)
  1. SUTENT [Suspect]
     Active Substance: SUNITINIB MALATE
     Dosage: 50 MG, CYCLIC (1 CAPSULE EVERY DAY FOR 14 DAYS ON AND 7 DAYS OFF)
     Route: 048
     Dates: start: 201702

REACTIONS (3)
  - Rash [Unknown]
  - Drug dose omission [Unknown]
  - Fatigue [Recovered/Resolved]
